FAERS Safety Report 9991434 (Version 1)
Quarter: 2014Q1

REPORT INFORMATION
  Report Type: Spontaneous
  Country: US (occurrence: US)
  Receive Date: 20140310
  Receipt Date: 20140310
  Transmission Date: 20141002
  Serious: No
  Sender: FDA-Public Use
  Company Number: US-ABBVIE-13P-163-1134015-00

PATIENT
  Age: 68 Year
  Sex: Female
  Weight: 57.66 kg

DRUGS (9)
  1. HUMIRA [Suspect]
     Indication: RHEUMATOID ARTHRITIS
     Dates: start: 2006
  2. COUMADIN [Concomitant]
     Indication: CARDIAC VALVE DISEASE
  3. LANOXIN [Concomitant]
     Indication: CARDIAC VALVE DISEASE
  4. METOPROLOL [Concomitant]
     Indication: PRODUCT USED FOR UNKNOWN INDICATION
  5. PRAVASTATIN [Concomitant]
     Indication: BLOOD CHOLESTEROL INCREASED
  6. ARAVA [Concomitant]
     Indication: RHEUMATOID ARTHRITIS
  7. MULTIVITAMIN [Concomitant]
     Indication: PRODUCT USED FOR UNKNOWN INDICATION
  8. ASPIRIN [Concomitant]
     Indication: PRODUCT USED FOR UNKNOWN INDICATION
  9. TRIAMTERENE HCTZ [Concomitant]
     Indication: HYPERTENSION

REACTIONS (3)
  - Injury associated with device [Recovered/Resolved]
  - Wrong technique in drug usage process [Recovered/Resolved]
  - Injection site haemorrhage [Recovered/Resolved]
